FAERS Safety Report 8997347 (Version 1)
Quarter: 2013Q1

REPORT INFORMATION
  Report Type: Report from Study
  Country: US (occurrence: US)
  Receive Date: 20130104
  Receipt Date: 20130104
  Transmission Date: 20140127
  Serious: Yes (Hospitalization, Other)
  Sender: FDA-Public Use
  Company Number: US-JNJFOC-20121213329

PATIENT
  Sex: Female
  Weight: 58.06 kg

DRUGS (5)
  1. REMICADE [Suspect]
     Indication: RHEUMATOID ARTHRITIS
     Route: 042
     Dates: start: 201208
  2. REMICADE [Suspect]
     Indication: RHEUMATOID ARTHRITIS
     Dosage: LAST DOSE
     Route: 042
     Dates: start: 201210
  3. PRILOSEC [Concomitant]
     Indication: GASTROOESOPHAGEAL REFLUX DISEASE
     Route: 048
  4. METHOTREXATE [Concomitant]
     Indication: ARTHRITIS
     Dosage: 2.5 MG 5 PILLS WEEKLY
     Route: 048
  5. TYLENOL NO.3 [Concomitant]
     Dosage: BEDTIME
     Route: 048

REACTIONS (2)
  - Nodule [Recovered/Resolved]
  - Infection [Recovered/Resolved]
